FAERS Safety Report 17447312 (Version 1)
Quarter: 2020Q1

REPORT INFORMATION
  Report Type: Report from Study
  Country: CA (occurrence: CA)
  Receive Date: 20200221
  Receipt Date: 20200221
  Transmission Date: 20200409
  Serious: Yes (Other)
  Sender: FDA-Public Use
  Company Number: CA-JNJFOC-20191228444

PATIENT
  Age: 58 Year
  Sex: Female
  Weight: 88.2 kg

DRUGS (1)
  1. REMICADE [Suspect]
     Active Substance: INFLIXIMAB
     Indication: CROHN^S DISEASE
     Route: 042
     Dates: start: 20170525

REACTIONS (7)
  - Conjunctivitis allergic [Recovered/Resolved]
  - Infusion related reaction [Recovered/Resolved]
  - Fall [Unknown]
  - Contusion [Unknown]
  - Fatigue [Unknown]
  - Face injury [Unknown]
  - Dizziness [Recovered/Resolved]

NARRATIVE: CASE EVENT DATE: 201912
